FAERS Safety Report 18043450 (Version 2)
Quarter: 2020Q3

REPORT INFORMATION
  Report Type: Spontaneous
  Country: CZ (occurrence: CZ)
  Receive Date: 20200720
  Receipt Date: 20200917
  Transmission Date: 20201103
  Serious: Yes (Hospitalization, Other)
  Sender: FDA-Public Use
  Company Number: NVSC2020CZ203137

PATIENT
  Age: 91 Year
  Sex: Female

DRUGS (10)
  1. DABIGATRAN [Suspect]
     Active Substance: DABIGATRAN
     Indication: PULMONARY EMBOLISM
     Dosage: 110 MG, QD (1?0?1)
     Route: 048
  2. FUROSEMIDE. [Suspect]
     Active Substance: FUROSEMIDE
     Indication: PRODUCT USED FOR UNKNOWN INDICATION
     Dosage: 250 MG, QD (1?1?0)
     Route: 048
  3. DABIGATRAN [Suspect]
     Active Substance: DABIGATRAN
     Dosage: 75 MG
     Route: 065
  4. RAMIPRIL. [Concomitant]
     Active Substance: RAMIPRIL
     Indication: PRODUCT USED FOR UNKNOWN INDICATION
     Dosage: 1.25 MG, QD (1?0?0)
     Route: 048
  5. DIOSMIN [Concomitant]
     Active Substance: DIOSMIN
     Indication: PRODUCT USED FOR UNKNOWN INDICATION
     Dosage: 1 DF, QD (1?0?1)
     Route: 048
  6. POTASSIUM CHLORIDE. [Concomitant]
     Active Substance: POTASSIUM CHLORIDE
     Indication: PRODUCT USED FOR UNKNOWN INDICATION
     Dosage: 1 DF, QD (0?1?0)
     Route: 048
  7. SPIRONOLACTONE. [Concomitant]
     Active Substance: SPIRONOLACTONE
     Indication: PRODUCT USED FOR UNKNOWN INDICATION
     Dosage: 25 MG, QD (1?0?0)
     Route: 048
  8. METOPROLOL. [Concomitant]
     Active Substance: METOPROLOL
     Indication: PRODUCT USED FOR UNKNOWN INDICATION
     Dosage: 50 MG, QD (1?0?1)
     Route: 048
  9. FUROSEMIDE. [Suspect]
     Active Substance: FUROSEMIDE
     Dosage: UNK (HIGH DOSES)
     Route: 065
  10. LANSOPRAZOL [Concomitant]
     Active Substance: LANSOPRAZOLE
     Indication: PRODUCT USED FOR UNKNOWN INDICATION
     Dosage: 1 DF, QD (1?0?1)
     Route: 048

REACTIONS (5)
  - Drug level increased [Recovering/Resolving]
  - Haemorrhoids [Unknown]
  - Intestinal haemorrhage [Recovered/Resolved]
  - Renal failure [Unknown]
  - Therapeutic response increased [Recovered/Resolved]
